FAERS Safety Report 9338605 (Version 1)
Quarter: 2013Q2

REPORT INFORMATION
  Report Type: Spontaneous
  Country: US (occurrence: None)
  Receive Date: 20130605
  Receipt Date: 20130605
  Transmission Date: 20140414
  Serious: Yes (Other)
  Sender: FDA-Public Use
  Company Number: None

PATIENT
  Age: 43 Year
  Sex: Female

DRUGS (1)
  1. ORENCIA [Suspect]
     Indication: RHEUMATOID ARTHRITIS
     Dosage: ONCE A WEEK
     Route: 058
     Dates: start: 20130501, end: 20130514

REACTIONS (4)
  - Oropharyngeal pain [None]
  - Dyspnoea [None]
  - Throat irritation [None]
  - Nervousness [None]
